FAERS Safety Report 15603118 (Version 1)
Quarter: 2018Q4

REPORT INFORMATION
  Report Type: Spontaneous
  Country: JP (occurrence: JP)
  Receive Date: 20181109
  Receipt Date: 20181109
  Transmission Date: 20190205
  Serious: Yes (Other)
  Sender: FDA-Public Use
  Company Number: JP-GLAXOSMITHKLINE-JP2018JPN201433

PATIENT
  Age: 65 Year
  Sex: Female

DRUGS (8)
  1. VALTREX [Suspect]
     Active Substance: VALACYCLOVIR HYDROCHLORIDE
     Dosage: 2000 MG, 1D
     Route: 048
     Dates: start: 201403, end: 201407
  2. VALTREX [Suspect]
     Active Substance: VALACYCLOVIR HYDROCHLORIDE
     Dosage: 1000 MG, 1D
     Route: 048
     Dates: start: 201407, end: 201409
  3. PREDNISOLONE. [Concomitant]
     Active Substance: PREDNISOLONE
     Indication: SYSTEMIC LUPUS ERYTHEMATOSUS
     Dosage: 18 MG, 1D
     Route: 048
     Dates: end: 2014
  4. ACICLOVIR [Concomitant]
     Active Substance: ACYCLOVIR
     Indication: NECROTISING RETINITIS
     Dosage: UNK
     Route: 042
     Dates: start: 201312, end: 201402
  5. GANCICLOVIR. [Concomitant]
     Active Substance: GANCICLOVIR
     Indication: NECROTISING RETINITIS
     Dosage: 500 ?G, UNK
     Route: 061
     Dates: start: 201401, end: 201402
  6. VALTREX [Suspect]
     Active Substance: VALACYCLOVIR HYDROCHLORIDE
     Indication: NECROTISING RETINITIS
     Dosage: 3000 MG, 1D
     Route: 048
     Dates: start: 201402, end: 201403
  7. PREDNISOLONE. [Concomitant]
     Active Substance: PREDNISOLONE
     Dosage: 12 MG, 1D
     Route: 048
     Dates: start: 2014, end: 201407
  8. PREDNISOLONE. [Concomitant]
     Active Substance: PREDNISOLONE
     Dosage: 10 MG, 1D
     Route: 048
     Dates: start: 201407

REACTIONS (6)
  - Product use in unapproved indication [Unknown]
  - Tractional retinal detachment [Unknown]
  - White blood cell count decreased [Unknown]
  - Progressive multifocal leukoencephalopathy [Unknown]
  - Communication disorder [Unknown]
  - Disease progression [Unknown]

NARRATIVE: CASE EVENT DATE: 201409
